FAERS Safety Report 21796388 (Version 1)
Quarter: 2022Q4

REPORT INFORMATION
  Report Type: Report from Study
  Country: US (occurrence: US)
  Receive Date: 20221229
  Receipt Date: 20221229
  Transmission Date: 20230113
  Serious: Yes (Other)
  Sender: FDA-Public Use
  Company Number: US-SEATTLE GENETICS-2022SGN12382

PATIENT
  Sex: Male

DRUGS (1)
  1. TUCATINIB [Suspect]
     Active Substance: TUCATINIB
     Indication: Breast cancer male
     Dosage: UNK
     Route: 065

REACTIONS (4)
  - Immobile [Unknown]
  - Joint stiffness [Unknown]
  - Pain [Unknown]
  - Apathy [Unknown]
